FAERS Safety Report 6257277-X (Version None)
Quarter: 2009Q3

REPORT INFORMATION
  Report Type: 
  Country: None (occurrence: None)
  Receive Date: 20090706
  Receipt Date: 20090624
  Transmission Date: 20100115
  Serious: Yes (Other)
  Sender: FDA-Public Use
  Company Number: US-ELI_LILLY_AND_COMPANY-US200906005878

PATIENT
  Sex: Male

DRUGS (2)
  1. STRATTERA [Suspect]
     Indication: ATTENTION DEFICIT/HYPERACTIVITY DISORDER
     Dosage: 80 MG, DAILY (1/D)
     Route: 065
     Dates: start: 20080601
  2. STRATTERA [Suspect]
     Dosage: 100 MG, DAILY (1/D)
     Route: 065
     Dates: start: 20080723

REACTIONS (1)
  - HOMICIDE [None]
